FAERS Safety Report 18144830 (Version 3)
Quarter: 2020Q4

REPORT INFORMATION
  Report Type: Spontaneous
  Country: FR (occurrence: FR)
  Receive Date: 20200813
  Receipt Date: 20201027
  Transmission Date: 20210113
  Serious: Yes (Other)
  Sender: FDA-Public Use
  Company Number: FR-ALLERGAN-2029937US

PATIENT
  Sex: Female

DRUGS (17)
  1. TRUSOPT [Suspect]
     Active Substance: DORZOLAMIDE HYDROCHLORIDE
     Dosage: 1 DROP MORNING AND EVENING IN BOTH EYES
     Route: 047
     Dates: end: 201910
  2. CHIBRO-CADRON [Suspect]
     Active Substance: DEXAMETHASONE\NEOMYCIN SULFATE
     Indication: POSTOPERATIVE CARE
     Dosage: ACTUAL: AFTER CATARACT SURGERY FOR THE RIGHT EYE
     Route: 047
     Dates: start: 20201005
  3. DIAMOX SEQUELS [Suspect]
     Active Substance: ACETAZOLAMIDE
     Indication: INTRAOCULAR PRESSURE INCREASED
     Dosage: 0.5 DF, HALF A TABLET TWICE A DAY (MORNING AND EVENING) FOR THREE DAYS
     Route: 048
     Dates: start: 202003, end: 202003
  4. GANFORT [Suspect]
     Active Substance: BIMATOPROST\TIMOLOL
     Indication: GLAUCOMA
     Dosage: 1 DROP IN THE EVENING IN RIGHT EYE (STOP DATE: MAR-2020)
     Route: 047
     Dates: start: 2020
  5. GANFORT [Suspect]
     Active Substance: BIMATOPROST\TIMOLOL
     Dosage: 1 DROP IN THE EVENING IN BOTH EYES
     Route: 047
     Dates: end: 201910
  6. CHIBRO-CADRON [Suspect]
     Active Substance: DEXAMETHASONE\NEOMYCIN SULFATE
     Dosage: ACTUAL: PRESCRIBED FOR 15 DAYS FOLLOWING GLAUCOMA SURGERY PERFORMED ON LEFT EYE (STOP DATE: 2019)
     Route: 047
     Dates: start: 201910
  7. DIAMOX SEQUELS [Suspect]
     Active Substance: ACETAZOLAMIDE
     Dosage: UNK
     Route: 065
     Dates: start: 20191012, end: 201910
  8. CHIBRO-CADRON [Suspect]
     Active Substance: DEXAMETHASONE\NEOMYCIN SULFATE
     Dosage: ACTUAL: AGAIN PRESCRIBED FOLLOWING GLAUCOMA SURGERY PERFORMED (ON THE RIGHT EYE) FOR 15 DAYS
     Route: 047
     Dates: start: 202003, end: 2020
  9. DIAMOX SEQUELS [Suspect]
     Active Substance: ACETAZOLAMIDE
     Dosage: 0.5 DF, TWICE A DAY (MORNING AND EVENING) FOR THREE DAYS, TABLET
     Route: 048
     Dates: start: 201910, end: 201910
  10. INDOCOLLYRE 0.1% COLLYRE [Suspect]
     Active Substance: INDOMETHACIN
     Dosage: AGAIN PRESCRIBED FOR ONE MONTH FOLLOWING TRABECULECTOMY PERFORMED ON A GLAUCOMA (ON THE RIGHT EYE)
     Route: 047
     Dates: start: 202003, end: 2020
  11. INDOCOLLYRE 0.1% COLLYRE [Suspect]
     Active Substance: INDOMETHACIN
     Indication: POSTOPERATIVE CARE
     Dosage: ACTUAL: ONE DROP 3 TIMES PER DAY FOR 1 MONTH FOR THE RIGHT EYE AFTER CATARACT SURGERY
     Route: 047
     Dates: start: 20201005
  12. INDOCOLLYRE 0.1% COLLYRE [Suspect]
     Active Substance: INDOMETHACIN
     Dosage: BETWEEN 29-JUN-2020 AND 24-JUL-2020 APPROX, USED INTERMITTENTLY FOR BLURRY VISION ON THE RIGHT EYE
     Route: 047
     Dates: start: 202006, end: 202007
  13. INDOCOLLYRE 0.1% COLLYRE [Suspect]
     Active Substance: INDOMETHACIN
     Dosage: ACTUAL: 1ST PRESCRIBED FOR 1 MO FOLLOWING GLAUCOMA SURGERY PERFORMED ON LEFT EYE (STOP DATE: 2019)
     Route: 047
     Dates: start: 201910
  14. LEVOFREE 0.05% COLLYRE EN SOLUTION EN RECIPIENT UNIDOSE [Suspect]
     Active Substance: LEVOCABASTINE HYDROCHLORIDE
     Indication: CONJUNCTIVITIS ALLERGIC
     Dosage: PRESCRIBED BETWEEN 29-JUN-2020 AND 30-JUN-2020, USED INTERMITTENTLY (ONLY THREE OR FOUR USES)
     Route: 065
     Dates: start: 20200629, end: 20200630
  15. TRUSOPT [Suspect]
     Active Substance: DORZOLAMIDE HYDROCHLORIDE
     Indication: GLAUCOMA
     Dosage: 1 DROP MORNING AND EVENING IN RIGHT EYE (STOP DATE: MAR-2020)
     Route: 047
     Dates: start: 2020
  16. DACRYOSERUM [Suspect]
     Active Substance: BORIC ACID\SODIUM BORATE
     Indication: POSTOPERATIVE CARE
     Dosage: UNK
     Route: 065
     Dates: start: 201910
  17. THEALOSE [Suspect]
     Active Substance: HYALURONATE SODIUM\TREHALOSE
     Indication: DRY EYE
     Dosage: FOUR TO FIVE DROPS IN THE LEFT EYE ONLY FOR 6 MONTHS AND RIGHT EYE (DOSE UNSPECIFIED)
     Route: 047
     Dates: start: 202002

REACTIONS (5)
  - Dry eye [Unknown]
  - Presbyopia [Unknown]
  - Lacrimation increased [Recovering/Resolving]
  - Myopia [Unknown]
  - Cataract [Not Recovered/Not Resolved]

NARRATIVE: CASE EVENT DATE: 2020
